FAERS Safety Report 17440470 (Version 1)
Quarter: 2020Q1

REPORT INFORMATION
  Report Type: Spontaneous
  Country: US (occurrence: US)
  Receive Date: 20200220
  Receipt Date: 20200220
  Transmission Date: 20200409
  Serious: No
  Sender: FDA-Public Use
  Company Number: None

PATIENT
  Age: 13 Year
  Sex: Male
  Weight: 100 kg

DRUGS (3)
  1. VITAMIN D [Concomitant]
     Active Substance: VITAMIN D NOS
  2. KID MULTIVITAMIN [Concomitant]
  3. OSELTAMIVIR PHOSPHATE. [Suspect]
     Active Substance: OSELTAMIVIR PHOSPHATE
     Indication: INFLUENZA
     Dosage: ?          QUANTITY:10 MILLILITERS;?
     Route: 048
     Dates: start: 20200219, end: 20200219

REACTIONS (4)
  - Sleep terror [None]
  - Suicidal ideation [None]
  - Hallucination, visual [None]
  - Aggression [None]

NARRATIVE: CASE EVENT DATE: 20200219
